FAERS Safety Report 6710138-1 (Version None)
Quarter: 2010Q2

REPORT INFORMATION
  Report Type: 
  Country: None (occurrence: None)
  Receive Date: 20100504
  Receipt Date: 20100426
  Transmission Date: 20101027
  Serious: Yes (Death)
  Sender: FDA-Public Use
  Company Number: FR-ROCHE-700060

PATIENT
  Sex: Male
  Weight: 74 kg

DRUGS (6)
  1. BEVACIZUMAB [Suspect]
     Route: 042
     Dates: start: 20081013, end: 20090420
  2. XELOX [Suspect]
     Route: 042
     Dates: start: 20080516, end: 20080718
  3. FOLFIRI REGIMEN [Suspect]
     Route: 042
     Dates: start: 20081013, end: 20090420
  4. CETUXIMAB [Suspect]
     Route: 042
     Dates: start: 20090806, end: 20090917
  5. IRINOTECAN HYDROCHLORIDE [Suspect]
     Route: 042
     Dates: start: 20090806, end: 20090910
  6. PAZOPANIB [Suspect]
     Route: 048
     Dates: start: 20090807, end: 20090924

REACTIONS (1)
  - GASTROINTESTINAL FISTULA [None]
